FAERS Safety Report 4933235-X (Version None)
Quarter: 2006Q1

REPORT INFORMATION
  Report Type: 
  Country: None (occurrence: None)
  Receive Date: 20060106
  Receipt Date: 20050831
  Transmission Date: 20060701
  Serious: No
  Sender: FDA-Public Use
  Company Number: 200511813BWH

PATIENT
  Age: 60 Year
  Sex: Male

DRUGS (6)
  1. LEVITRA [Suspect]
     Indication: ERECTILE DYSFUNCTION
     Dosage: 20 MG, ONCE, ORAL
     Route: 048
     Dates: start: 20050830
  2. GLUCOPHAGE [Concomitant]
  3. GLYBURIDE [Concomitant]
  4. COUMADIN [Concomitant]
  5. ZETIA [Concomitant]
  6. DIOVAN [Concomitant]

REACTIONS (1)
  - ERECTILE DYSFUNCTION [None]
